FAERS Safety Report 10053554 (Version 2)
Quarter: 2014Q2

REPORT INFORMATION
  Report Type: Spontaneous
  Country: US (occurrence: US)
  Receive Date: 20140402
  Receipt Date: 20140523
  Transmission Date: 20141212
  Serious: No
  Sender: FDA-Public Use
  Company Number: US-PFIZER INC-2014090406

PATIENT
  Age: 90 Year
  Sex: Male
  Weight: 61.22 kg

DRUGS (2)
  1. ADVIL PM [Suspect]
     Indication: PAIN
     Dosage: UNK
  2. ADVIL PM [Suspect]
     Indication: INSOMNIA
     Dosage: 600 MG, ONCE DAILY (3 CAPSULES OF 200 MG TOGETHER)

REACTIONS (2)
  - Overdose [Unknown]
  - Drug ineffective [Unknown]
